FAERS Safety Report 5721951-1 (Version None)
Quarter: 2008Q2

REPORT INFORMATION
  Report Type: 
  Country: None (occurrence: None)
  Receive Date: 20080429
  Receipt Date: 20080417
  Transmission Date: 20081010
  Serious: Yes (Other)
  Sender: FDA-Public Use
  Company Number: AU-PFIZER INC-2008025816

PATIENT
  Sex: Female

DRUGS (5)
  1. CHAMPIX [Suspect]
     Route: 048
  2. OSTELIN [Suspect]
     Dosage: TEXT:ONE IN THE MORNING
     Route: 048
  3. VITAMIN D [Concomitant]
  4. AVAPRO HCT [Concomitant]
     Route: 048
  5. MOVALIS [Concomitant]
     Route: 048

REACTIONS (2)
  - ECZEMA [None]
  - PETECHIAE [None]
